FAERS Safety Report 12092601 (Version 1)
Quarter: 2016Q1

REPORT INFORMATION
  Report Type: Spontaneous
  Country: US (occurrence: None)
  Receive Date: 20160217
  Receipt Date: 20160217
  Transmission Date: 20160526
  Serious: No
  Sender: FDA-Public Use
  Company Number: None

PATIENT
  Age: 69 Year
  Sex: Female

DRUGS (15)
  1. PRAVASTATIN [Concomitant]
     Active Substance: PRAVASTATIN\PRAVASTATIN SODIUM
  2. CARVEDILOL. [Concomitant]
     Active Substance: CARVEDILOL
  3. LEVOTHYROXINE. [Concomitant]
     Active Substance: LEVOTHYROXINE
  4. ADVAIR HFA [Concomitant]
     Active Substance: FLUTICASONE PROPIONATE\SALMETEROL XINAFOATE
  5. SUTENT [Suspect]
     Active Substance: SUNITINIB MALATE
     Indication: NON-HODGKIN^S LYMPHOMA
     Route: 048
     Dates: start: 20160204
  6. MONTELUKAST [Concomitant]
     Active Substance: MONTELUKAST SODIUM
  7. FUROSEMIDE. [Concomitant]
     Active Substance: FUROSEMIDE
  8. PROAIR HFA [Concomitant]
     Active Substance: ALBUTEROL SULFATE
  9. ENALAPRIL [Concomitant]
     Active Substance: ENALAPRIL
  10. DOCUSATE [Concomitant]
     Active Substance: DOCUSATE
  11. LEVEMIR [Concomitant]
     Active Substance: INSULIN DETEMIR
  12. HUMALOG [Concomitant]
     Active Substance: INSULIN LISPRO
  13. OMEPRAZOLE. [Concomitant]
     Active Substance: OMEPRAZOLE
  14. QVAR [Concomitant]
     Active Substance: BECLOMETHASONE DIPROPIONATE
  15. ASPIRIN. [Concomitant]
     Active Substance: ASPIRIN

REACTIONS (1)
  - Dizziness [None]

NARRATIVE: CASE EVENT DATE: 201602
